FAERS Safety Report 11088488 (Version 1)
Quarter: 2015Q2

REPORT INFORMATION
  Report Type: Spontaneous
  Country: PT (occurrence: PT)
  Receive Date: 20150504
  Receipt Date: 20150504
  Transmission Date: 20150821
  Serious: Yes (Death, Other)
  Sender: FDA-Public Use
  Company Number: PT-MYLANLABS-2015M1013440

PATIENT

DRUGS (8)
  1. RESOQUINA [Concomitant]
     Indication: RHEUMATOID ARTHRITIS
     Dosage: UNK
  2. FINASTERIDE. [Suspect]
     Active Substance: FINASTERIDE
     Indication: ANDROGENETIC ALOPECIA
     Dosage: 5 MG, (PATIENT TOOK 19 TABLETS UNTIL)
     Route: 048
     Dates: start: 201503, end: 20150329
  3. HYDROCORTISONE. [Concomitant]
     Active Substance: HYDROCORTISONE
     Indication: PRODUCT USED FOR UNKNOWN INDICATION
     Dosage: UNK, TWICE A WEEK
  4. RESOQUINA [Concomitant]
     Indication: HYPERTENSION
  5. ALOREXYL [Suspect]
     Active Substance: MINOXIDIL
     Indication: PRODUCT USED FOR UNKNOWN INDICATION
     Dosage: UNK,ONCE DAILY
  6. PERINDOPRIL [Concomitant]
     Active Substance: PERINDOPRIL
     Indication: HYPERTENSION
     Dosage: 8 MG, UNK
  7. PARACETAMOL [Concomitant]
     Active Substance: ACETAMINOPHEN
     Indication: PAIN
     Dosage: UNK, (WHENEVER NEEDED)
  8. ATORVASTATIN [Concomitant]
     Active Substance: ATORVASTATIN
     Indication: BLOOD CHOLESTEROL INCREASED
     Dosage: 10 MG, UNK

REACTIONS (8)
  - Headache [Unknown]
  - Anuria [Unknown]
  - Erythema [Unknown]
  - Death [Fatal]
  - Urinary retention [None]
  - Blood pressure abnormal [Unknown]
  - Oedema peripheral [Unknown]
  - Off label use [Unknown]

NARRATIVE: CASE EVENT DATE: 20150329
